FAERS Safety Report 11070645 (Version 2)
Quarter: 2015Q3

REPORT INFORMATION
  Report Type: Spontaneous
  Country: JP (occurrence: JP)
  Receive Date: 20150427
  Receipt Date: 20150812
  Transmission Date: 20151125
  Serious: Yes (Hospitalization)
  Sender: FDA-Public Use
  Company Number: ALJP2015JP000571

PATIENT
  Age: 60 Year
  Sex: Male

DRUGS (7)
  1. CRAVIT [Concomitant]
     Active Substance: LEVOFLOXACIN
     Indication: PREOPERATIVE CARE
     Dosage: 5X/DAY
     Route: 047
     Dates: start: 20150407, end: 20150410
  2. MYDRIN-P [Concomitant]
     Indication: MYDRIASIS
     Dosage: 5X/DAY
     Route: 047
     Dates: start: 20150410, end: 20150410
  3. PA IODO [Concomitant]
     Indication: PREOPERATIVE CARE
     Dosage: UNK
     Route: 047
     Dates: start: 20150410, end: 20150410
  4. BSS PLUS [Suspect]
     Active Substance: CALCIUM CHLORIDE\DEXTROSE\MAGNESIUM CHLORIDE\OXIGLUTATIONE\POTASSIUM CHLORIDE\SODIUM BICARBONATE\SODIUM CHLORIDE\SODIUM PHOSPHATE\SODIUM PHOSPHATE, DIBASIC
     Indication: INTRAOCULAR LENS IMPLANT
     Dosage: UNK, QD
     Route: 031
     Dates: start: 20150410, end: 20150410
  5. XYLOCAINE [Concomitant]
     Active Substance: LIDOCAINE HYDROCHLORIDE
     Indication: PREOPERATIVE CARE
     Dosage: UNK
     Route: 047
     Dates: start: 20150410, end: 20150410
  6. CRAVIT [Concomitant]
     Active Substance: LEVOFLOXACIN
     Dosage: UNK UNK, TID
     Route: 047
     Dates: start: 20150411, end: 20150412
  7. NEVANAC [Suspect]
     Active Substance: NEPAFENAC
     Indication: PREOPERATIVE CARE
     Dosage: 5X/DAY
     Route: 047
     Dates: start: 20150410, end: 20150410

REACTIONS (1)
  - Endophthalmitis [Unknown]

NARRATIVE: CASE EVENT DATE: 20150412
